FAERS Safety Report 23792032 (Version 1)
Quarter: 2024Q2

REPORT INFORMATION
  Report Type: Spontaneous
  Country: CA (occurrence: CA)
  Receive Date: 20240429
  Receipt Date: 20240429
  Transmission Date: 20240715
  Serious: Yes (Other)
  Sender: FDA-Public Use
  Company Number: CA-ADVANZ PHARMA-202404003533

PATIENT
  Age: 53 Year
  Sex: Female

DRUGS (4)
  1. OCALIVA [Suspect]
     Active Substance: OBETICHOLIC ACID
     Indication: Primary biliary cholangitis
     Dosage: 5 MG, QD (OCALIVA)
     Route: 048
     Dates: start: 20220310
  2. OCALIVA [Suspect]
     Active Substance: OBETICHOLIC ACID
     Dosage: 10 MG, QD (OCALIVA)
     Route: 048
  3. BEZAFIBRATE [Suspect]
     Active Substance: BEZAFIBRATE
     Dosage: 400 MG, QD (ABOUT 1 MONTH AGO)
     Dates: start: 2024
  4. URSODIOL [Concomitant]
     Active Substance: URSODIOL
     Dosage: 1000 MG
     Dates: start: 2012

REACTIONS (2)
  - Hepatitis [Unknown]
  - Peripheral swelling [Unknown]
